FAERS Safety Report 23758798 (Version 1)
Quarter: 2024Q2

REPORT INFORMATION
  Report Type: Other
  Country: US (occurrence: None)
  Receive Date: 20240418
  Receipt Date: 20240418
  Transmission Date: 20240716
  Serious: No
  Sender: FDA-Public Use
  Company Number: US-ROCHE-3510533

PATIENT
  Age: 54 Year
  Sex: Male

DRUGS (17)
  1. BEVACIZUMAB [Suspect]
     Active Substance: BEVACIZUMAB
     Indication: Paraneoplastic syndrome
     Route: 065
  2. BEVACIZUMAB [Suspect]
     Active Substance: BEVACIZUMAB
     Indication: Solitary fibrous tumour
  3. BEVACIZUMAB [Suspect]
     Active Substance: BEVACIZUMAB
     Indication: Metastases to liver
  4. TEMOZOLOMIDE [Suspect]
     Active Substance: TEMOZOLOMIDE
     Indication: Paraneoplastic syndrome
     Route: 065
  5. TEMOZOLOMIDE [Suspect]
     Active Substance: TEMOZOLOMIDE
     Indication: Solitary fibrous tumour
  6. TEMOZOLOMIDE [Suspect]
     Active Substance: TEMOZOLOMIDE
     Indication: Metastases to liver
  7. PAZOPANIB [Suspect]
     Active Substance: PAZOPANIB
     Indication: Paraneoplastic syndrome
     Route: 065
  8. PAZOPANIB [Suspect]
     Active Substance: PAZOPANIB
     Indication: Solitary fibrous tumour
  9. PAZOPANIB [Suspect]
     Active Substance: PAZOPANIB
     Indication: Metastases to liver
  10. SORAFENIB [Suspect]
     Active Substance: SORAFENIB
     Indication: Paraneoplastic syndrome
     Route: 065
  11. SORAFENIB [Suspect]
     Active Substance: SORAFENIB
     Indication: Solitary fibrous tumour
  12. SORAFENIB [Suspect]
     Active Substance: SORAFENIB
     Indication: Metastases to liver
  13. TRABECTEDIN [Suspect]
     Active Substance: TRABECTEDIN
     Indication: Paraneoplastic syndrome
     Route: 065
  14. TRABECTEDIN [Suspect]
     Active Substance: TRABECTEDIN
     Indication: Solitary fibrous tumour
  15. TRABECTEDIN [Suspect]
     Active Substance: TRABECTEDIN
     Indication: Metastases to liver
  16. DEXTROSE [Concomitant]
     Active Substance: DEXTROSE\DEXTROSE MONOHYDRATE
  17. D5LRS [Concomitant]

REACTIONS (1)
  - Disease progression [Not Recovered/Not Resolved]
